FAERS Safety Report 21026399 (Version 6)
Quarter: 2022Q3

REPORT INFORMATION
  Report Type: Report from Study
  Country: AR (occurrence: AR)
  Receive Date: 20220630
  Receipt Date: 20220902
  Transmission Date: 20221027
  Serious: Yes (Life-Threatening, Hospitalization)
  Sender: FDA-Public Use
  Company Number: AR-JNJFOC-20220654680

PATIENT
  Age: 64 Year
  Sex: Female
  Weight: 74 kg

DRUGS (19)
  1. ESKETAMINE [Suspect]
     Active Substance: ESKETAMINE
     Indication: Depression
     Dates: start: 20170920, end: 20220615
  2. ENALAPRIL [Concomitant]
     Active Substance: ENALAPRIL
  3. ASPIRIN [Concomitant]
     Active Substance: ASPIRIN
     Indication: Prophylaxis
     Route: 048
     Dates: start: 2001, end: 20220622
  4. ASPIRIN [Concomitant]
     Active Substance: ASPIRIN
     Indication: Thrombosis prophylaxis
     Dosage: DAILY
     Route: 048
     Dates: start: 20220824
  5. IBUPROFEN [Concomitant]
     Active Substance: IBUPROFEN
     Indication: Headache
     Route: 048
     Dates: start: 20161026
  6. ACETAMINOPHEN [Concomitant]
     Active Substance: ACETAMINOPHEN
     Indication: Influenza
     Route: 048
     Dates: start: 20180620, end: 20180625
  7. ACETAMINOPHEN [Concomitant]
     Active Substance: ACETAMINOPHEN
     Indication: Renal colic
     Route: 048
     Dates: start: 20201210, end: 20201212
  8. BROMHEXINA [BROMHEXINE] [Concomitant]
     Indication: Influenza
     Route: 048
     Dates: start: 20180620, end: 20180625
  9. PSEUDOEPHEDRINE [Concomitant]
     Active Substance: PSEUDOEPHEDRINE
     Indication: Influenza
     Route: 048
     Dates: start: 20180620, end: 20180625
  10. AMITRIPTYLINE [Concomitant]
     Active Substance: AMITRIPTYLINE
     Indication: Insomnia
     Route: 048
     Dates: start: 20180924, end: 20210617
  11. KETOROLACO [KETOROLAC] [Concomitant]
     Indication: Renal colic
     Route: 048
     Dates: start: 20190521, end: 20190527
  12. KETOROLACO [KETOROLAC] [Concomitant]
     Indication: Nephrolithiasis
     Dosage: ROUTE: INTRAVENOUS
     Dates: start: 20201224, end: 20201225
  13. METOCLOPRAMIDE [Concomitant]
     Active Substance: METOCLOPRAMIDE
     Indication: Vomiting
     Route: 048
     Dates: start: 20190807, end: 20190820
  14. METAMIZOL [Concomitant]
     Active Substance: METAMIZOLE SODIUM
     Indication: Abdominal pain
     Route: 048
     Dates: start: 20190807, end: 20190820
  15. ACETAMINOPHEN [Concomitant]
     Active Substance: ACETAMINOPHEN
     Indication: Fibula fracture
     Route: 048
     Dates: start: 20200130, end: 20200209
  16. DICLOFENAC [Concomitant]
     Active Substance: DICLOFENAC
     Indication: Fibula fracture
     Route: 048
     Dates: start: 20200130, end: 20200209
  17. DICLOFENAC [Concomitant]
     Active Substance: DICLOFENAC
     Indication: Ligament sprain
     Route: 048
     Dates: start: 20201226, end: 20201228
  18. BETHANECHOL [Concomitant]
     Active Substance: BETHANECHOL
     Indication: Rectal tenesmus
     Route: 048
     Dates: start: 20210727
  19. BUDESONIDE [Concomitant]
     Active Substance: BUDESONIDE
     Indication: Laryngitis
     Dosage: ROUTE: INHALATION
     Dates: start: 20220517, end: 20220523

REACTIONS (1)
  - Atrial fibrillation [Recovered/Resolved]

NARRATIVE: CASE EVENT DATE: 20220622
